FAERS Safety Report 4922295-8 (Version None)
Quarter: 2006Q1

REPORT INFORMATION
  Report Type: 
  Country: None (occurrence: None)
  Receive Date: 20060221
  Receipt Date: 20060209
  Transmission Date: 20060701
  Serious: Yes (Other)
  Sender: FDA-Public Use
  Company Number: 2006019256

PATIENT
  Age: 38 Year
  Sex: Female
  Weight: 50 kg

DRUGS (4)
  1. ZELDOX (CAPSULES) (ZIPRASIDONE) [Suspect]
     Indication: PSYCHOTIC DISORDER
     Dosage: 320 MG (80 MG, 4 IN 1 D), ORAL
     Route: 048
     Dates: start: 20051130, end: 20051220
  2. ETUMINA (CLOTIAPINE) [Suspect]
     Indication: ILL-DEFINED DISORDER
     Dosage: 120 MG (40 MG, 3 IN 1 D), ORAL
     Route: 048
     Dates: start: 20051206, end: 20051220
  3. CLORAZEPATE DIPOTASSIUM [Concomitant]
  4. AKINETON [Concomitant]

REACTIONS (2)
  - COLITIS ISCHAEMIC [None]
  - DRUG INTERACTION [None]
